FAERS Safety Report 4499718-4 (Version None)
Quarter: 2004Q4

REPORT INFORMATION
  Report Type: 
  Country: None (occurrence: None)
  Receive Date: 20041108
  Receipt Date: 20041027
  Transmission Date: 20050328
  Serious: Yes (Hospitalization)
  Sender: FDA-Public Use
  Company Number: OMPQ-NO-0411S-1328

PATIENT
  Age: 85 Year
  Sex: Female

DRUGS (6)
  1. OMNIPAQUE 180 [Suspect]
     Dosage: 50 ML,SINGLE DOSE, I.V.
     Route: 042
     Dates: start: 20040820, end: 20040820
  2. AMANTADINE HYDROCHLORIDE (SYMMETREL) [Concomitant]
  3. LEVODOPA, CARBIDOPA (NEO DOPASTON) [Concomitant]
  4. PERGOLIDE MESILATE (PERMAX) [Concomitant]
  5. TEPRENONE (SELBEX) [Concomitant]
  6. ALFACALCIDOL (ALFAROL) [Concomitant]

REACTIONS (1)
  - DEPRESSED LEVEL OF CONSCIOUSNESS [None]
